FAERS Safety Report 12116423 (Version 1)
Quarter: 2016Q1

REPORT INFORMATION
  Report Type: Report from Study
  Country: DE (occurrence: DE)
  Receive Date: 20160225
  Receipt Date: 20160225
  Transmission Date: 20160526
  Serious: Yes (Other)
  Sender: FDA-Public Use
  Company Number: DE-ELI_LILLY_AND_COMPANY-BMS-2015-081324

PATIENT
  Age: 72 Year
  Sex: Male
  Weight: 82 kg

DRUGS (7)
  1. CETUXIMAB [Suspect]
     Active Substance: CETUXIMAB
     Indication: HEAD AND NECK CANCER
     Dosage: 400 MG/M2, SINGLE
     Route: 042
     Dates: start: 20150707, end: 20150707
  2. CISPLATIN. [Concomitant]
     Active Substance: CISPLATIN
     Dosage: 6400 MG, CYCLE 2
     Route: 042
     Dates: start: 20150817, end: 20150918
  3. 5-FU                               /00098801/ [Concomitant]
     Active Substance: FLUOROURACIL
     Indication: HEAD AND NECK CANCER
     Dosage: 7500 MG/M2, (APPLICATION SCHEMA T1 - T5)
     Route: 065
     Dates: start: 20150713
  4. ZANTAC [Concomitant]
     Active Substance: RANITIDINE HYDROCHLORIDE
     Indication: PREMEDICATION
     Route: 065
  5. CETUXIMAB [Suspect]
     Active Substance: CETUXIMAB
     Dosage: 250 MG/M2, WEEKLY (1/W)
     Route: 042
     Dates: start: 20150713
  6. CISPLATIN. [Concomitant]
     Active Substance: CISPLATIN
     Indication: HEAD AND NECK CANCER
     Dosage: 200 MG/M2, WEEKLY (1/W)
     Route: 065
     Dates: start: 20150713
  7. 5-FU                               /00098801/ [Concomitant]
     Active Substance: FLUOROURACIL
     Dosage: 6400 MG, QD
     Route: 065
     Dates: start: 20150817, end: 20150918

REACTIONS (5)
  - Mucosal inflammation [Recovered/Resolved]
  - Bone marrow failure [Recovered/Resolved]
  - Aphthous ulcer [Recovered/Resolved]
  - Dry skin [Recovered/Resolved]
  - Dermatitis acneiform [Recovered/Resolved]

NARRATIVE: CASE EVENT DATE: 20150727
